FAERS Safety Report 8390104-3 (Version None)
Quarter: 2012Q2

REPORT INFORMATION
  Report Type: 
  Country: None (occurrence: None)
  Receive Date: 20120529
  Receipt Date: 20120524
  Transmission Date: 20120825
  Serious: Yes (Hospitalization)
  Sender: FDA-Public Use
  Company Number: PHHY2012VE044862

PATIENT
  Sex: Female

DRUGS (2)
  1. ZOLEDRONOC ACID [Suspect]
     Indication: OSTEOPOROSIS
     Dosage: UNK MG, YEARLY
     Route: 042
     Dates: start: 20110101
  2. ZOLEDRONOC ACID [Suspect]
     Dosage: UNK MG, YEARLY
     Route: 042
     Dates: start: 20120424

REACTIONS (1)
  - HYPERTENSIVE CRISIS [None]
